FAERS Safety Report 8592405-2 (Version None)
Quarter: 2012Q3

REPORT INFORMATION
  Report Type: 
  Country: None (occurrence: None)
  Receive Date: 20120814
  Receipt Date: 20120807
  Transmission Date: 20120928
  Serious: Yes (Other)
  Sender: FDA-Public Use
  Company Number: JP-PFIZER INC-2010113185

PATIENT
  Age: 45 Year
  Sex: Male

DRUGS (12)
  1. PYRAZINAMIDE [Concomitant]
     Indication: TUBERCULOSIS
     Dosage: 1.2 G, 1X/DAY
     Route: 048
     Dates: start: 20100303, end: 20101103
  2. TRUVADA [Concomitant]
     Indication: HIV INFECTION
     Dosage: 1 DF, 1X/DAY
     Route: 048
     Dates: start: 20100225
  3. FOSAMPRENAVIR [Concomitant]
  4. ISENTRESS [Suspect]
     Indication: HIV INFECTION
     Dosage: 400 MG, 2X/DAY
     Route: 048
     Dates: start: 20100225, end: 20100518
  5. ZIDOVUDINE [Concomitant]
  6. TOLEDOMIN [Concomitant]
     Indication: DEPRESSION
     Dosage: 25 MG, 1X/DAY
     Route: 048
     Dates: start: 20100216, end: 20101103
  7. RIFABUTIN [Suspect]
     Indication: TUBERCULOSIS
     Dosage: 300 MG, 1X/DAY
     Route: 048
     Dates: start: 20100303, end: 20101103
  8. EBUTOL [Concomitant]
     Indication: TUBERCULOSIS
     Dosage: 750 MG, 1X/DAY
     Route: 048
     Dates: start: 20100303, end: 20101103
  9. SULFAMETHOXAZOLE AND TRIMETHOPRIM [Concomitant]
     Indication: PROPHYLAXIS
     Dosage: 1 DF, 1X/DAY
     Route: 048
     Dates: start: 20100210, end: 20100622
  10. LENDORMIN [Concomitant]
     Indication: INSOMNIA
     Dosage: 0.25 MG, 1X/DAY
     Route: 048
     Dates: start: 20100122, end: 20100622
  11. ISONIAZID [Concomitant]
     Indication: TUBERCULOSIS
     Dosage: 300 MG, 1X/DAY
     Route: 048
     Dates: start: 20100303, end: 20101103
  12. PYDOXAL [Concomitant]
     Indication: VITAMIN SUPPLEMENTATION
     Dosage: 20 MG, 1X/DAY
     Route: 048
     Dates: start: 20100303, end: 20101103

REACTIONS (4)
  - DRUG RESISTANCE [None]
  - IRRITABILITY [None]
  - HALLUCINATION, AUDITORY [None]
  - ANXIETY [None]
